FAERS Safety Report 6125420-9 (Version None)
Quarter: 2009Q1

REPORT INFORMATION
  Report Type: 
  Country: None (occurrence: None)
  Receive Date: 20090320
  Receipt Date: 20090312
  Transmission Date: 20090719
  Serious: Yes (Life-Threatening, Hospitalization)
  Sender: FDA-Public Use
  Company Number: FR-ASTRAZENECA-2008CG01003

PATIENT
  Age: 20388 Day
  Sex: Male

DRUGS (8)
  1. DIPRIVAN [Suspect]
     Indication: GENERAL ANAESTHESIA
     Route: 042
     Dates: start: 20080514, end: 20080514
  2. DIPRIVAN [Suspect]
     Route: 042
     Dates: start: 20080909, end: 20080909
  3. CELOCURIN [Suspect]
     Indication: GENERAL ANAESTHESIA
     Route: 042
     Dates: start: 20080514, end: 20080514
  4. SUFENTANIL MERCK [Suspect]
     Indication: GENERAL ANAESTHESIA
     Route: 042
     Dates: start: 20080514, end: 20080514
  5. SUFENTANIL MERCK [Suspect]
     Route: 042
     Dates: start: 20080909, end: 20080909
  6. CELIPROLOL [Concomitant]
  7. PERMIXON [Concomitant]
     Route: 048
  8. OMIX LP [Concomitant]
     Route: 048

REACTIONS (4)
  - ANAPHYLACTIC SHOCK [None]
  - CARDIAC ARREST [None]
  - CIRCULATORY COLLAPSE [None]
  - ERYTHEMA [None]
